FAERS Safety Report 15677323 (Version 2)
Quarter: 2018Q4

REPORT INFORMATION
  Report Type: Spontaneous
  Country: US (occurrence: US)
  Receive Date: 20181130
  Receipt Date: 20181203
  Transmission Date: 20190205
  Serious: Yes (Hospitalization, Other)
  Sender: FDA-Public Use
  Company Number: US-SA-2018SA322552

PATIENT
  Age: 68 Year
  Sex: Male

DRUGS (1)
  1. LANTUS SOLOSTAR [Suspect]
     Active Substance: INSULIN GLARGINE
     Indication: TYPE 1 DIABETES MELLITUS
     Dosage: 40 U, QD
     Route: 065

REACTIONS (5)
  - Hypoglycaemia [Unknown]
  - Diabetic ketoacidosis [Unknown]
  - Blood glucose abnormal [Unknown]
  - Eye disorder [Unknown]
  - Ear disorder [Unknown]
